FAERS Safety Report 9253852 (Version 2)
Quarter: 2013Q3

REPORT INFORMATION
  Report Type: Spontaneous
  Country: US (occurrence: US)
  Receive Date: 20130425
  Receipt Date: 20130705
  Transmission Date: 20140515
  Serious: Yes (Disabling)
  Sender: FDA-Public Use
  Company Number: US-ASTRAZENECA-2013SE27318

PATIENT
  Sex: Female

DRUGS (19)
  1. NEXIUM [Suspect]
     Indication: GASTROOESOPHAGEAL REFLUX DISEASE
     Route: 048
     Dates: start: 2000, end: 2007
  2. OMEPRAZOLE [Suspect]
     Route: 048
     Dates: start: 20050311
  3. CLONADINE [Concomitant]
  4. NORVASC [Concomitant]
  5. CEZERA [Concomitant]
  6. LABETALOL [Concomitant]
     Dates: start: 20081226
  7. DIOVAN [Concomitant]
     Dates: start: 20020304
  8. TIZANIDINE [Concomitant]
     Dates: start: 20031122
  9. ALPRAZOLAM [Concomitant]
     Dates: start: 20061102
  10. PREMARIN [Concomitant]
     Dates: start: 20020109
  11. PANTOPRAZOLE [Concomitant]
  12. METFORMIN [Concomitant]
  13. COUMADIN [Concomitant]
     Dates: start: 20050809
  14. COZAAR [Concomitant]
  15. PIROXICAM [Concomitant]
     Dates: start: 20020516
  16. METHYLPRED [Concomitant]
     Dates: start: 20030425
  17. TOPROL XL [Concomitant]
     Dates: start: 20040120
  18. NEURONTIN [Concomitant]
     Dates: start: 20040306
  19. PROMETHAZINE [Concomitant]
     Dates: start: 20050817

REACTIONS (4)
  - Thrombosis [Unknown]
  - Osteoporosis [Unknown]
  - Bone density decreased [Unknown]
  - Multiple fractures [Unknown]
